FAERS Safety Report 4836575-8 (Version None)
Quarter: 2005Q4

REPORT INFORMATION
  Report Type: 
  Country: None (occurrence: None)
  Receive Date: 20051121
  Receipt Date: 20051108
  Transmission Date: 20060501
  Serious: Yes (Other)
  Sender: FDA-Public Use
  Company Number: 2005152933

PATIENT
  Sex: Male

DRUGS (14)
  1. NEURONTIN [Suspect]
     Indication: CAUDA EQUINA SYNDROME
     Dosage: 3800 MG (DAILY), ORAL
     Route: 048
     Dates: start: 19990101
  2. NEURONTIN [Suspect]
     Indication: NEURALGIA
     Dosage: 3800 MG (DAILY), ORAL
     Route: 048
     Dates: start: 19990101
  3. GABAPENTIN [Suspect]
     Indication: CAUDA EQUINA SYNDROME
     Dosage: 3800 MG (DAILY), ORAL
     Route: 048
  4. GABAPENTIN [Suspect]
     Indication: NEURALGIA
     Dosage: 3800 MG (DAILY), ORAL
     Route: 048
  5. FLOMAX [Concomitant]
  6. BUSPAR [Concomitant]
  7. BACTRIM [Concomitant]
  8. SAW PALMENTTO (SAW PALMETT0) [Concomitant]
  9. SOMA [Concomitant]
  10. TIZANIDINE HCL [Concomitant]
  11. MACROGOL (MACROGOL) [Concomitant]
  12. DOCUSATE SODIUM (DOCUSATE SODIUM) [Concomitant]
  13. METHADONE (METHADONE) [Concomitant]
  14. SELENIUM (SELENIUM) [Concomitant]

REACTIONS (8)
  - AMNESIA [None]
  - COGNITIVE DISORDER [None]
  - CONFUSIONAL STATE [None]
  - DIZZINESS [None]
  - FATIGUE [None]
  - HYPOKINESIA [None]
  - NEURALGIA [None]
  - SPEECH DISORDER [None]
